FAERS Safety Report 10168708 (Version 1)
Quarter: 2014Q2

REPORT INFORMATION
  Report Type: Spontaneous
  Country: GB (occurrence: GB)
  Receive Date: 20140513
  Receipt Date: 20140513
  Transmission Date: 20141212
  Serious: Yes (Hospitalization)
  Sender: FDA-Public Use
  Company Number: GB-ROCHE-1399617

PATIENT
  Age: 16 Year
  Sex: Female
  Weight: 84 kg

DRUGS (7)
  1. XOLAIR [Suspect]
     Indication: ASTHMA
     Route: 058
     Dates: start: 201310
  2. XOLAIR [Suspect]
     Route: 058
     Dates: start: 201311
  3. XOLAIR [Suspect]
     Route: 058
     Dates: start: 201403
  4. SERETIDE [Concomitant]
  5. MONTELUKAST [Concomitant]
  6. LORATADINE [Concomitant]
  7. THEOPHYLLINE [Concomitant]

REACTIONS (2)
  - Asthma [Recovered/Resolved with Sequelae]
  - Injection site reaction [Recovered/Resolved with Sequelae]
